FAERS Safety Report 15585766 (Version 2)
Quarter: 2018Q4

REPORT INFORMATION
  Report Type: Spontaneous
  Country: US (occurrence: US)
  Receive Date: 20181105
  Receipt Date: 20181206
  Transmission Date: 20190205
  Serious: Yes (Other)
  Sender: FDA-Public Use
  Company Number: US-TEVA-2018-US-970697

PATIENT
  Sex: Female

DRUGS (1)
  1. LOSARTAN TEVA [Suspect]
     Active Substance: LOSARTAN

REACTIONS (2)
  - Abdominal distension [Unknown]
  - Cardiac flutter [Unknown]
